FAERS Safety Report 12456839 (Version 1)
Quarter: 2016Q2

REPORT INFORMATION
  Report Type: Not Available
  Country: IE (occurrence: IE)
  Receive Date: 20160610
  Receipt Date: 20160610
  Transmission Date: 20160815
  Serious: Yes (Other)
  Sender: FDA-Public Use
  Company Number: IE-MUNDIPHARMA DS AND PHARMACOVIGILANCE-GBR-2016-0036928

PATIENT
  Sex: Female

DRUGS (1)
  1. OXYNORM CAPSULES [Suspect]
     Active Substance: OXYCODONE HYDROCHLORIDE
     Indication: PAIN
     Dosage: 1 DF, EVERY FOUR TO SIX HOURLY
     Route: 048
     Dates: start: 20160517, end: 20160519

REACTIONS (3)
  - Visual impairment [Recovered/Resolved]
  - Malaise [Recovered/Resolved]
  - Asthenia [Recovered/Resolved]

NARRATIVE: CASE EVENT DATE: 20160518
